FAERS Safety Report 25215605 (Version 1)
Quarter: 2025Q2

REPORT INFORMATION
  Report Type: Spontaneous
  Country: US (occurrence: US)
  Receive Date: 20250418
  Receipt Date: 20250418
  Transmission Date: 20250716
  Serious: No
  Sender: Phathom Pharmaceuticals
  Company Number: US-PHATHOM PHARMACEUTICALS INC.-2025PHT00493

PATIENT
  Age: 77 Year
  Sex: Female

DRUGS (2)
  1. VOQUEZNA [Suspect]
     Active Substance: VONOPRAZAN FUMARATE
     Route: 048
  2. CITALOPRAM [Suspect]
     Active Substance: CITALOPRAM

REACTIONS (3)
  - Feeling jittery [Unknown]
  - Abdominal discomfort [Unknown]
  - Drug interaction [Recovered/Resolved]
